FAERS Safety Report 7291944-4 (Version None)
Quarter: 2011Q1

REPORT INFORMATION
  Report Type: 
  Country: None (occurrence: None)
  Receive Date: 20110214
  Receipt Date: 20110204
  Transmission Date: 20110831
  Serious: Yes (Hospitalization)
  Sender: FDA-Public Use
  Company Number: US-MERCK-1010USA01166

PATIENT
  Age: 64 Year
  Sex: Female

DRUGS (1)
  1. FOSAMAX [Suspect]
     Indication: OSTEOPENIA
     Route: 048
     Dates: start: 20031001, end: 20091001

REACTIONS (5)
  - ARTHROPATHY [None]
  - HYPERTENSION [None]
  - BONE DENSITY DECREASED [None]
  - GALLBLADDER DISORDER [None]
  - FEMUR FRACTURE [None]
